FAERS Safety Report 6255887-7 (Version None)
Quarter: 2009Q3

REPORT INFORMATION
  Report Type: 
  Country: None (occurrence: None)
  Receive Date: 20090703
  Receipt Date: 20090626
  Transmission Date: 20100115
  Serious: Yes (Hospitalization)
  Sender: FDA-Public Use
  Company Number: IT-PFIZER INC-2009233974

PATIENT
  Age: 84 Year

DRUGS (7)
  1. ESTRACYT [Suspect]
     Indication: PROSTATE CANCER
     Dosage: 420 MG, 1X/DAY
     Route: 048
     Dates: start: 20090201, end: 20090331
  2. DECAPEPTYL [Concomitant]
     Indication: PROSTATE CANCER
     Dosage: 11.25 MG, UNK
     Route: 058
  3. FOSIPRES [Concomitant]
     Dosage: 20 MG, UNK
     Route: 048
  4. LORAZEPAM [Concomitant]
     Dosage: 2.5 MG, UNK
     Route: 048
  5. PARIET [Concomitant]
     Dosage: 20 MG, UNK
     Route: 048
  6. SPIRIVA [Concomitant]
     Dosage: 18 UG, UNK
  7. SERETIDE [Concomitant]
     Dosage: 300 UG, UNK
     Route: 045

REACTIONS (4)
  - CHOLELITHIASIS [None]
  - HEPATIC NECROSIS [None]
  - HEPATITIS TOXIC [None]
  - JAUNDICE [None]
